FAERS Safety Report 7210264-7 (Version None)
Quarter: 2010Q4

REPORT INFORMATION
  Report Type: 
  Country: None (occurrence: None)
  Receive Date: 20101223
  Receipt Date: 20101209
  Transmission Date: 20110411
  Serious: Yes (Hospitalization)
  Sender: FDA-Public Use
  Company Number: DSA_44504_2010

PATIENT
  Age: 58 Year
  Sex: Male

DRUGS (1)
  1. ENALAPRIL MALEATE [Suspect]
     Indication: PRODUCT USED FOR UNKNOWN INDICATION
     Dosage: (25 MG, DF, ORAL) (10 MG, DF ORAL)
     Route: 048

REACTIONS (8)
  - ATELECTASIS [None]
  - CARDIAC IMAGING PROCEDURE ABNORMAL [None]
  - CHEST PAIN [None]
  - DIZZINESS [None]
  - FALL [None]
  - HEART RATE INCREASED [None]
  - PNEUMOTHORAX [None]
  - SYNCOPE [None]
